FAERS Safety Report 22614527 (Version 1)
Quarter: 2023Q2

REPORT INFORMATION
  Report Type: Other
  Country: RU (occurrence: RU)
  Receive Date: 20230619
  Receipt Date: 20230619
  Transmission Date: 20230722
  Serious: Yes (Other)
  Sender: FDA-Public Use
  Company Number: RU-Bion-011733

PATIENT

DRUGS (3)
  1. VALPROIC ACID [Suspect]
     Active Substance: VALPROIC ACID
     Indication: Haematological malignancy
  2. BORTEZOMIB [Concomitant]
     Active Substance: BORTEZOMIB
     Indication: Haematological malignancy
     Dosage: 1.3 MG/M2 ON DAY 2 AND 5
     Route: 058
  3. AZACITIDINE [Concomitant]
     Active Substance: AZACITIDINE
     Indication: Haematological malignancy
     Dosage: 30 MG/M2 ON DAYS 1-5

REACTIONS (1)
  - Sepsis [Unknown]
